FAERS Safety Report 18156280 (Version 1)
Quarter: 2020Q3

REPORT INFORMATION
  Report Type: Spontaneous
  Country: US (occurrence: US)
  Receive Date: 20200815
  Receipt Date: 20200815
  Transmission Date: 20201103
  Serious: No
  Sender: FDA-Public Use
  Company Number: None

PATIENT
  Age: 74 Year
  Sex: Male
  Weight: 65.25 kg

DRUGS (11)
  1. CARBIDOPA/LEVODOPA ER 25/100 [Concomitant]
  2. TAMSULOSIN 0.4MG [Concomitant]
     Active Substance: TAMSULOSIN
  3. CICLOPIROX 0.77% [Concomitant]
  4. ATORVASTATIN 20MG [Concomitant]
     Active Substance: ATORVASTATIN
  5. CAPECITABINE. [Suspect]
     Active Substance: CAPECITABINE
     Indication: PANCREATIC CARCINOMA
     Route: 048
     Dates: start: 20180427
  6. VIT B12 100MCG [Concomitant]
  7. IRBESARTAN 150MG [Concomitant]
     Active Substance: IRBESARTAN
  8. CHLORTHALIDONE 50MG [Concomitant]
     Active Substance: CHLORTHALIDONE
  9. TRULICITY [Concomitant]
     Active Substance: DULAGLUTIDE
  10. BACTRIM DS [Concomitant]
     Active Substance: SULFAMETHOXAZOLE\TRIMETHOPRIM
  11. FUROSEMIDE 20MG [Concomitant]
     Active Substance: FUROSEMIDE

REACTIONS (1)
  - Skin hyperpigmentation [None]

NARRATIVE: CASE EVENT DATE: 20200815
